FAERS Safety Report 23521428 (Version 2)
Quarter: 2024Q1

REPORT INFORMATION
  Report Type: Spontaneous
  Country: CA (occurrence: CA)
  Receive Date: 20240214
  Receipt Date: 20240304
  Transmission Date: 20240410
  Serious: Yes (Other)
  Sender: FDA-Public Use
  Company Number: CA-862174955-ML2024-00796

PATIENT
  Age: 56 Year
  Sex: Female

DRUGS (1)
  1. RANOLAZINE [Suspect]
     Active Substance: RANOLAZINE
     Indication: Product used for unknown indication
     Route: 048
     Dates: start: 20231214

REACTIONS (6)
  - Hallucination, tactile [Unknown]
  - Chest pain [Unknown]
  - Abdominal distension [Unknown]
  - Swelling face [Unknown]
  - Dizziness [Unknown]
  - Inappropriate schedule of product administration [Unknown]
